FAERS Safety Report 22533290 (Version 2)
Quarter: 2023Q2

REPORT INFORMATION
  Report Type: Spontaneous
  Country: US (occurrence: US)
  Receive Date: 20230607
  Receipt Date: 20230626
  Transmission Date: 20230722
  Serious: Yes (Other)
  Sender: FDA-Public Use
  Company Number: US-ABBVIE-5277867

PATIENT
  Sex: Male
  Weight: 75.296 kg

DRUGS (1)
  1. CREON [Suspect]
     Active Substance: PANCRELIPASE AMYLASE\PANCRELIPASE LIPASE\PANCRELIPASE PROTEASE
     Indication: Pancreatic carcinoma
     Dosage: 36000 UNIT, FREQUENCY TEXT: 3 CAPSULES EACH MEAL AND 1 WITH SNACK
     Route: 048
     Dates: start: 2020

REACTIONS (8)
  - Tracheal obstruction [Not Recovered/Not Resolved]
  - Product physical issue [Unknown]
  - Feeding disorder [Recovered/Resolved]
  - Secretion discharge [Unknown]
  - Increased upper airway secretion [Unknown]
  - Productive cough [Recovered/Resolved]
  - Productive cough [Unknown]
  - Blood glucose decreased [Not Recovered/Not Resolved]

NARRATIVE: CASE EVENT DATE: 20200101
